FAERS Safety Report 13366986 (Version 2)
Quarter: 2017Q3

REPORT INFORMATION
  Report Type: Report from Study
  Country: US (occurrence: US)
  Receive Date: 20170324
  Receipt Date: 20170721
  Transmission Date: 20171127
  Serious: No
  Sender: FDA-Public Use
  Company Number: PHEH2017US008638

PATIENT
  Sex: Female

DRUGS (1)
  1. GILENYA [Suspect]
     Active Substance: FINGOLIMOD HYDROCHLORIDE
     Indication: MULTIPLE SCLEROSIS
     Dosage: UNK
     Route: 048
     Dates: start: 20140801

REACTIONS (5)
  - Paraesthesia [Unknown]
  - Blood cholesterol increased [Unknown]
  - Fatigue [Unknown]
  - Skin haemorrhage [Unknown]
  - Scab [Unknown]

NARRATIVE: CASE EVENT DATE: 20170715
